FAERS Safety Report 14008352 (Version 2)
Quarter: 2017Q4

REPORT INFORMATION
  Report Type: Report from Study
  Country: US (occurrence: US)
  Receive Date: 20170925
  Receipt Date: 20171020
  Transmission Date: 20180321
  Serious: Yes (Hospitalization, Other)
  Sender: FDA-Public Use
  Company Number: US-PFIZER INC-2017406220

PATIENT
  Age: 39 Year
  Sex: Female
  Weight: 53.1 kg

DRUGS (15)
  1. METHOTREXATE. [Suspect]
     Active Substance: METHOTREXATE
     Indication: RHEUMATOID ARTHRITIS
     Dosage: 10 MG, WEEKLY
     Route: 048
     Dates: start: 20170731, end: 20170821
  2. DICLOFENAC SODIUM. [Concomitant]
     Active Substance: DICLOFENAC SODIUM
     Dosage: UNK
     Route: 065
     Dates: start: 20170616
  3. LINACLOTIDE [Concomitant]
     Active Substance: LINACLOTIDE
     Dosage: UNK
     Route: 065
     Dates: start: 20170502
  4. OXYCODONE HYDROCHLORIDE. [Concomitant]
     Active Substance: OXYCODONE HYDROCHLORIDE
     Dosage: UNK
     Route: 065
     Dates: start: 20170209
  5. CLONAPIN [Concomitant]
     Active Substance: CLONAZEPAM
     Dosage: UNK
     Route: 065
     Dates: start: 20160601
  6. ERGOCALCIFEROL. [Concomitant]
     Active Substance: ERGOCALCIFEROL
     Dosage: UNK
     Route: 065
     Dates: start: 20170901
  7. METHOTREXATE. [Suspect]
     Active Substance: METHOTREXATE
     Dosage: 15 MG, WEEKLY
     Route: 048
     Dates: start: 20170828
  8. ISONIAZID. [Concomitant]
     Active Substance: ISONIAZID
     Dosage: UNK
     Route: 065
     Dates: start: 20170620
  9. ONDANSETRON [Concomitant]
     Active Substance: ONDANSETRON
     Dosage: UNK
     Route: 065
     Dates: start: 20161118
  10. CALCIUM CARBONATE. [Concomitant]
     Active Substance: CALCIUM CARBONATE
     Dosage: UNK
     Route: 065
     Dates: start: 20160901
  11. FUROSEMIDE. [Concomitant]
     Active Substance: FUROSEMIDE
     Dosage: UNK
     Route: 065
     Dates: start: 20170109
  12. VITAMIN B12 [Concomitant]
     Active Substance: CYANOCOBALAMIN
     Dosage: UNK
     Route: 065
     Dates: start: 20160901
  13. FOLIC ACID. [Concomitant]
     Active Substance: FOLIC ACID
     Dosage: UNK
     Route: 065
     Dates: start: 20170731
  14. TRAZODONE HYDROCHLORIDE. [Concomitant]
     Active Substance: TRAZODONE HYDROCHLORIDE
     Dosage: UNK
     Route: 065
     Dates: start: 20160808
  15. DULOXETINE. [Concomitant]
     Active Substance: DULOXETINE
     Dosage: UNK
     Route: 065
     Dates: start: 20170531

REACTIONS (1)
  - Nephrolithiasis [Not Recovered/Not Resolved]

NARRATIVE: CASE EVENT DATE: 20170904
